FAERS Safety Report 10722796 (Version 1)
Quarter: 2015Q1

REPORT INFORMATION
  Report Type: Spontaneous
  Country: US (occurrence: US)
  Receive Date: 20150120
  Receipt Date: 20150120
  Transmission Date: 20150721
  Serious: No
  Sender: FDA-Public Use
  Company Number: US-TEVA-504314USA

PATIENT
  Sex: Female

DRUGS (2)
  1. CLEMASTINE [Suspect]
     Active Substance: CLEMASTINE
     Route: 065
  2. TRAMADOL [Concomitant]
     Active Substance: TRAMADOL

REACTIONS (1)
  - Rash [Unknown]
